FAERS Safety Report 22532510 (Version 1)
Quarter: 2023Q2

REPORT INFORMATION
  Report Type: Spontaneous
  Country: US (occurrence: US)
  Receive Date: 20230607
  Receipt Date: 20230607
  Transmission Date: 20230722
  Serious: Yes (Other)
  Sender: FDA-Public Use
  Company Number: US-BAUSCHBL-2023BNL004865

PATIENT
  Age: 5 Year
  Sex: Female

DRUGS (1)
  1. VERTEPORFIN [Suspect]
     Active Substance: VERTEPORFIN
     Indication: Choroidal osteoma
     Dosage: 6 MILLIGRAM/M? IN
     Route: 042

REACTIONS (2)
  - Choroidal neovascularisation [Recovered/Resolved]
  - Product use in unapproved indication [Unknown]
